FAERS Safety Report 13306112 (Version 2)
Quarter: 2017Q2

REPORT INFORMATION
  Report Type: Spontaneous
  Country: GB (occurrence: GB)
  Receive Date: 20170308
  Receipt Date: 20170427
  Transmission Date: 20170830
  Serious: Yes (Other)
  Sender: FDA-Public Use
  Company Number: ALCN2017GB001724

PATIENT
  Age: 85 Year
  Sex: Female
  Weight: 60.5 kg

DRUGS (2)
  1. AZOPT [Suspect]
     Active Substance: BRINZOLAMIDE
     Indication: PRODUCT USED FOR UNKNOWN INDICATION
     Dosage: 1 GTT, BID
     Route: 047
     Dates: start: 201607, end: 20161220
  2. MONOPOST [Concomitant]
     Indication: GLAUCOMA
     Dosage: 1 GTT, QD
     Route: 065

REACTIONS (3)
  - Chest pain [Recovered/Resolved]
  - Liquid product physical issue [Unknown]
  - Muscle spasms [Recovered/Resolved]

NARRATIVE: CASE EVENT DATE: 201609
